FAERS Safety Report 7514418-1 (Version None)
Quarter: 2011Q2

REPORT INFORMATION
  Report Type: 
  Country: None (occurrence: None)
  Receive Date: 20110601
  Receipt Date: 20110526
  Transmission Date: 20111010
  Serious: Yes (Hospitalization)
  Sender: FDA-Public Use
  Company Number: CH-BRISTOL-MYERS SQUIBB COMPANY-15781685

PATIENT
  Age: 12 Year
  Sex: Male
  Weight: 36 kg

DRUGS (14)
  1. AMIKIN [Suspect]
     Indication: PSEUDOMONAS INFECTION
     Route: 042
     Dates: start: 20110217, end: 20110309
  2. MORPHINE [Suspect]
     Route: 042
     Dates: start: 20110218, end: 20110218
  3. VANCOMYCIN [Suspect]
     Route: 042
     Dates: start: 20110201, end: 20110217
  4. MEROPENEM [Suspect]
     Indication: PSEUDOMONAS INFECTION
     Dosage: 15FEB-17FEB11,3X0.5GM ON 11MAR11,2X1.5GM
     Route: 042
     Dates: start: 20110201, end: 20110311
  5. ACETAMINOPHEN [Suspect]
     Route: 048
     Dates: start: 20110215, end: 20110220
  6. TEGRETOL-XR [Suspect]
     Route: 048
  7. ZOFRAN [Suspect]
     Route: 042
     Dates: start: 20110218, end: 20110218
  8. NALBUPHINE [Suspect]
     Route: 042
     Dates: start: 20110218, end: 20110218
  9. TORADOL [Suspect]
  10. METRONIDAZOLE [Suspect]
     Dosage: METRONIDAZOLE B BRAUN
     Route: 042
     Dates: start: 20110217, end: 20110301
  11. IBRUPROFEN [Suspect]
     Route: 048
     Dates: start: 20110215, end: 20110216
  12. NOVALGIN [Suspect]
  13. URBANYL [Suspect]
     Route: 048
  14. NIFEDIPINE [Suspect]
     Dosage: NIFEDIPINMEPHA
     Route: 048
     Dates: start: 20110218, end: 20110218

REACTIONS (2)
  - AGRANULOCYTOSIS [None]
  - NEUTROPENIA [None]
